FAERS Safety Report 24274663 (Version 5)
Quarter: 2024Q4

REPORT INFORMATION
  Report Type: Spontaneous
  Country: CO (occurrence: CO)
  Receive Date: 20240902
  Receipt Date: 20241219
  Transmission Date: 20250115
  Serious: No
  Sender: PFIZER
  Company Number: CO-PFIZER INC-202400245762

PATIENT
  Age: 11 Year
  Sex: Female
  Weight: 141 kg

DRUGS (4)
  1. GENOTROPIN [Suspect]
     Active Substance: SOMATROPIN
     Indication: Small for dates baby
     Dosage: 1.4 MG, DAILY
     Route: 058
     Dates: start: 2022
  2. ALBUTEROL [Concomitant]
     Active Substance: ALBUTEROL
  3. MONTELUKAST [Concomitant]
     Active Substance: MONTELUKAST SODIUM
  4. CALCIUM [Concomitant]
     Active Substance: CALCIUM

REACTIONS (3)
  - Drug dose omission by device [Unknown]
  - Device information output issue [Unknown]
  - Product communication issue [Unknown]

NARRATIVE: CASE EVENT DATE: 20240815
